FAERS Safety Report 20117364 (Version 1)
Quarter: 2021Q4

REPORT INFORMATION
  Report Type: Spontaneous
  Country: US (occurrence: US)
  Receive Date: 20211126
  Receipt Date: 20211126
  Transmission Date: 20220303
  Serious: Yes (Other)
  Sender: FDA-Public Use
  Company Number: US-GLAXOSMITHKLINE-US2021GSK243598

PATIENT
  Sex: Male

DRUGS (12)
  1. ZANTAC [Suspect]
     Active Substance: RANITIDINE HYDROCHLORIDE
     Indication: Dyspepsia
     Dosage: 300 MG, QD
     Route: 065
     Dates: start: 198001, end: 201801
  2. ZANTAC [Suspect]
     Active Substance: RANITIDINE HYDROCHLORIDE
     Dosage: UNK, 75 MG OR 150 MG AT LEAST ONCE DAILY
     Route: 065
     Dates: start: 198001, end: 201801
  3. ZANTAC [Suspect]
     Active Substance: RANITIDINE HYDROCHLORIDE
     Indication: Dyspepsia
     Dosage: 300 MG, QD
     Route: 065
     Dates: start: 198001, end: 201801
  4. ZANTAC [Suspect]
     Active Substance: RANITIDINE HYDROCHLORIDE
     Dosage: UNK, 75 MG OR 150 MG AT LEAST ONCE DAILY
     Route: 065
     Dates: start: 198001, end: 201801
  5. RANITIDINE HYDROCHLORIDE [Suspect]
     Active Substance: RANITIDINE HYDROCHLORIDE
     Indication: Dyspepsia
     Dosage: 300 MG, QD
     Route: 065
     Dates: start: 198001, end: 201801
  6. RANITIDINE HYDROCHLORIDE [Suspect]
     Active Substance: RANITIDINE HYDROCHLORIDE
     Dosage: UNK, 75 MG OR 150 MG AT LEAST ONCE DAILY
     Route: 065
     Dates: start: 198001, end: 201801
  7. RANITIDINE HYDROCHLORIDE [Suspect]
     Active Substance: RANITIDINE HYDROCHLORIDE
     Indication: Dyspepsia
     Dosage: 300 MG, QD
     Route: 065
     Dates: start: 198001, end: 201801
  8. RANITIDINE HYDROCHLORIDE [Suspect]
     Active Substance: RANITIDINE HYDROCHLORIDE
     Dosage: UNK, 75 MG OR 150 MG AT LEAST ONCE DAILY
     Route: 065
     Dates: start: 198001, end: 201801
  9. RANITIDINE [Suspect]
     Active Substance: RANITIDINE
     Indication: Dyspepsia
     Dosage: 300 MG, QD
     Route: 065
     Dates: start: 198001, end: 201801
  10. RANITIDINE [Suspect]
     Active Substance: RANITIDINE
     Dosage: UNK, 75 MG OR 150 MG AT LEAST ONCE DAILY
     Route: 065
     Dates: start: 198001, end: 201801
  11. RANITIDINE [Suspect]
     Active Substance: RANITIDINE
     Indication: Dyspepsia
     Dosage: 300 MG, QD
     Route: 065
     Dates: start: 198001, end: 201801
  12. RANITIDINE [Suspect]
     Active Substance: RANITIDINE
     Dosage: UNK, 75 MG OR 150 MG AT LEAST ONCE DAILY
     Route: 065
     Dates: start: 198001, end: 201801

REACTIONS (1)
  - Prostate cancer [Unknown]
